FAERS Safety Report 8058776-0 (Version None)
Quarter: 2012Q1

REPORT INFORMATION
  Report Type: 
  Country: None (occurrence: None)
  Receive Date: 20120120
  Receipt Date: 20120113
  Transmission Date: 20120608
  Serious: Yes (Hospitalization)
  Sender: FDA-Public Use
  Company Number: RU-ASTRAZENECA-2012SE03712

PATIENT
  Age: 18939 Day
  Sex: Male

DRUGS (8)
  1. PREDUCTAL [Concomitant]
     Indication: IMPLANTABLE DEFIBRILLATOR INSERTION
     Route: 048
  2. LOZAP-PLUS [Concomitant]
     Indication: HYPERTENSION
     Route: 048
  3. BISOPROLOL [Concomitant]
     Indication: IMPLANTABLE DEFIBRILLATOR INSERTION
     Route: 048
  4. AMLODIPINE [Concomitant]
     Indication: HYPERTENSION
     Route: 048
  5. ATORVASTATIN [Concomitant]
     Indication: HYPERLIPIDAEMIA
     Route: 048
  6. ASPIRIN [Concomitant]
     Route: 048
  7. PLAVIX [Suspect]
     Indication: CORONARY ARTERY DISEASE
     Route: 048
     Dates: start: 20110831
  8. CLOPIDOGREL [Concomitant]
     Indication: ANTIPLATELET THERAPY
     Dates: start: 20110824

REACTIONS (1)
  - DUODENAL ULCER [None]
